FAERS Safety Report 5241112-2 (Version None)
Quarter: 2007Q1

REPORT INFORMATION
  Report Type: 
  Country: None (occurrence: None)
  Receive Date: 20070214
  Receipt Date: 20070214
  Transmission Date: 20070707
  Serious: Yes (Hospitalization)
  Sender: FDA-Public Use
  Company Number: None

PATIENT
  Sex: Male

DRUGS (12)
  1. TERAZOSIN HCL [Suspect]
     Indication: BENIGN PROSTATIC HYPERPLASIA
     Dosage: 1 MG DAILY X 3 DAYS DAILY PO
     Route: 048
  2. TERAZOSIN HCL [Suspect]
     Indication: BENIGN PROSTATIC HYPERPLASIA
     Dosage: 2 MG DAILY X 12 DAYS DAILY PO
     Route: 048
  3. APAP TAB [Concomitant]
  4. ALLOPURINOL [Concomitant]
  5. CIPROFLOXACIN [Concomitant]
  6. GABAPENTIN [Concomitant]
  7. TRIAMTERENE AND HYDROCHLOROTHIAZIDE [Concomitant]
  8. ACETAMINOPHEN AND HYDROCODONE BITARTRATE [Concomitant]
  9. MAGNESIUM OXIDE [Concomitant]
  10. PENICILLIN [Concomitant]
  11. POTASSIUM CITRATE [Concomitant]
  12. QUETIAPINE FUMARATE [Concomitant]

REACTIONS (2)
  - DIZZINESS [None]
  - FALL [None]
